FAERS Safety Report 15114846 (Version 1)
Quarter: 2018Q2

REPORT INFORMATION
  Report Type: Spontaneous
  Country: US (occurrence: US)
  Receive Date: 20180612
  Receipt Date: 20180612
  Transmission Date: 20180711
  Serious: No
  Sender: FDA-Public Use
  Company Number: None

PATIENT
  Age: 71 Year
  Sex: Female
  Weight: 74.84 kg

DRUGS (11)
  1. ZOFRAN [Concomitant]
     Active Substance: ONDANSETRON HYDROCHLORIDE
  2. ZOLOFT [Concomitant]
     Active Substance: SERTRALINE HYDROCHLORIDE
  3. PROTONIX [Concomitant]
     Active Substance: PANTOPRAZOLE SODIUM
  4. MELATONIN [Concomitant]
     Active Substance: MELATONIN
  5. BUPRENORPHINE TRANSDERMAL SYSTEM [Suspect]
     Active Substance: BUPRENORPHINE
     Indication: BACK PAIN
     Dosage: ?          QUANTITY:4 PATCHES;?
     Route: 061
     Dates: start: 20180421, end: 20180523
  6. GABAPENTIN. [Concomitant]
     Active Substance: GABAPENTIN
  7. CLONAZEPAM. [Concomitant]
     Active Substance: CLONAZEPAM
  8. LASIX [Concomitant]
     Active Substance: FUROSEMIDE
  9. SYNTHROID [Concomitant]
     Active Substance: LEVOTHYROXINE SODIUM
  10. FOSAMAX [Concomitant]
     Active Substance: ALENDRONATE SODIUM
  11. TIZANIDINE. [Concomitant]
     Active Substance: TIZANIDINE

REACTIONS (12)
  - Hyperhidrosis [None]
  - Rash pruritic [None]
  - Headache [None]
  - Blister [None]
  - Asthenia [None]
  - Tremor [None]
  - Fatigue [None]
  - Weight decreased [None]
  - Pyrexia [None]
  - Abdominal discomfort [None]
  - Oral pain [None]
  - Diarrhoea [None]

NARRATIVE: CASE EVENT DATE: 20180521
